FAERS Safety Report 9353131 (Version 3)
Quarter: 2013Q3

REPORT INFORMATION
  Report Type: Spontaneous
  Country: US (occurrence: US)
  Receive Date: 20130618
  Receipt Date: 20130830
  Transmission Date: 20140515
  Serious: Yes (Other)
  Sender: FDA-Public Use
  Company Number: US-009507513-1306USA006260

PATIENT
  Age: 47 Year
  Sex: Female

DRUGS (6)
  1. VICTRELIS [Suspect]
     Indication: CHRONIC HEPATITIS C
     Dosage: UNK
  2. PEGASYS [Suspect]
     Indication: CHRONIC HEPATITIS C
     Dosage: 180 MICROGRAM, QW
     Route: 058
     Dates: start: 20121121, end: 20121128
  3. PEGASYS [Suspect]
     Dosage: 90 MICROGRAM, QW
     Route: 058
     Dates: start: 20130221, end: 20130802
  4. RIBAVIRIN [Suspect]
     Indication: CHRONIC HEPATITIS C
     Dosage: 800 MG ONE PER DAY DIVIDED DOSES
     Route: 048
     Dates: start: 20121121, end: 20121128
  5. RIBAVIRIN [Suspect]
     Dosage: 1200 MG PER DAY (800/400)
     Route: 048
     Dates: start: 201212
  6. RIBAVIRIN [Suspect]
     Dosage: 400 MG, QD
     Route: 048
     Dates: start: 201304

REACTIONS (13)
  - Haemoglobin decreased [Unknown]
  - Anaemia [Unknown]
  - Depression [Recovered/Resolved]
  - Feeling cold [Unknown]
  - White blood cell count decreased [Unknown]
  - Weight decreased [Recovered/Resolved]
  - Insomnia [Recovered/Resolved]
  - Nausea [Recovered/Resolved]
  - Vomiting [Recovered/Resolved]
  - Diarrhoea [Not Recovered/Not Resolved]
  - Decreased appetite [Unknown]
  - Dry skin [Unknown]
  - Platelet count decreased [Unknown]
